FAERS Safety Report 7420189-X (Version None)
Quarter: 2011Q2

REPORT INFORMATION
  Report Type: 
  Country: None (occurrence: None)
  Receive Date: 20110418
  Receipt Date: 20110412
  Transmission Date: 20111010
  Serious: Yes (Other)
  Sender: FDA-Public Use
  Company Number: US-PFIZER INC-2011080691

PATIENT
  Sex: Male

DRUGS (4)
  1. LYRICA [Suspect]
     Dosage: 300 MG, UNK
  2. LYRICA [Suspect]
     Dosage: 200 MG, UNK
     Dates: start: 20080101
  3. OXYCONTIN [Concomitant]
     Dosage: UNK
  4. FENTANYL [Concomitant]
     Dosage: UNK

REACTIONS (5)
  - DEPRESSION [None]
  - DELUSION [None]
  - HALLUCINATION [None]
  - DELIRIUM [None]
  - PSYCHOTIC DISORDER [None]
